FAERS Safety Report 7573139-X (Version None)
Quarter: 2011Q2

REPORT INFORMATION
  Report Type: 
  Country: None (occurrence: None)
  Receive Date: 20110525
  Receipt Date: 20110415
  Transmission Date: 20111010
  Serious: Yes (Other)
  Sender: FDA-Public Use
  Company Number: 326772

PATIENT
  Age: 53 Year
  Sex: Female
  Weight: 71.2 kg

DRUGS (7)
  1. ATENOLOL [Concomitant]
  2. SINGULAIR [Concomitant]
  3. NEXIUM [Concomitant]
  4. VICTOZA [Suspect]
     Indication: TYPE 2 DIABETES MELLITUS
     Dosage: SUBCUTANEOUS,
     Dates: start: 20110301, end: 20110411
  5. GLUCOPHAGE [Concomitant]
  6. SPIRONOLACTONE [Concomitant]
  7. TRICOR (ADENOSINE) [Concomitant]

REACTIONS (2)
  - ANGIOEDEMA [None]
  - BRONCHOSPASM [None]
